FAERS Safety Report 20332021 (Version 1)
Quarter: 2022Q1

REPORT INFORMATION
  Report Type: Spontaneous
  Country: ES (occurrence: ES)
  Receive Date: 20220113
  Receipt Date: 20220113
  Transmission Date: 20220423
  Serious: Yes (Death, Hospitalization, Other)
  Sender: FDA-Public Use
  Company Number: ES-GILEAD-2022-0564171

PATIENT
  Age: 77 Year
  Sex: Male

DRUGS (5)
  1. VEKLURY [Suspect]
     Active Substance: REMDESIVIR
     Indication: COVID-19
     Dosage: 5 DAYS
     Route: 065
     Dates: start: 202109, end: 202109
  2. PIPERACILLIN AND TAZOBACTAM [Concomitant]
     Active Substance: PIPERACILLIN SODIUM\TAZOBACTAM SODIUM
     Dosage: UNK
     Dates: start: 202109
  3. VANCOMYCIN [Concomitant]
     Active Substance: VANCOMYCIN
     Indication: Enterococcal infection
     Dosage: UNK
     Dates: start: 202109
  4. VANCOMYCIN [Concomitant]
     Active Substance: VANCOMYCIN
     Indication: Device related bacteraemia
  5. DEXAMETHASONE [Concomitant]
     Active Substance: DEXAMETHASONE
     Dosage: 20 MG, QD (FOR 4 DAYS)
     Dates: start: 202109

REACTIONS (1)
  - Drug ineffective [Fatal]
